FAERS Safety Report 19513733 (Version 3)
Quarter: 2023Q4

REPORT INFORMATION
  Report Type: Spontaneous
  Country: US (occurrence: US)
  Receive Date: 20210709
  Receipt Date: 20231027
  Transmission Date: 20240110
  Serious: No
  Sender: FDA-Public Use
  Company Number: US-AVEO ONCOLOGY-2021-AVEO-US003369

PATIENT
  Sex: Female

DRUGS (1)
  1. FOTIVDA [Suspect]
     Active Substance: TIVOZANIB HYDROCHLORIDE
     Indication: Renal cell carcinoma
     Dosage: 1.34 MG, CYCLIC
     Route: 048

REACTIONS (5)
  - Fatigue [Unknown]
  - Sluggishness [Unknown]
  - Joint stiffness [Unknown]
  - Dehydration [Unknown]
  - Constipation [Unknown]
